FAERS Safety Report 7313185-4 (Version None)
Quarter: 2011Q1

REPORT INFORMATION
  Report Type: 
  Country: None (occurrence: None)
  Receive Date: 20110215
  Receipt Date: 20110215
  Transmission Date: 20110831
  Serious: Yes (Other)
  Sender: FDA-Public Use
  Company Number: None

PATIENT
  Age: 52 Year
  Sex: Female
  Weight: 61.6892 kg

DRUGS (1)
  1. HEPARIN [Suspect]

REACTIONS (11)
  - WEIGHT DECREASED [None]
  - LOSS OF CONSCIOUSNESS [None]
  - CARDIAC MURMUR [None]
  - HEART RATE IRREGULAR [None]
  - ISCHAEMIA [None]
  - DYSPHAGIA [None]
  - ARTHRALGIA [None]
  - PRODUCT QUALITY ISSUE [None]
  - MEMORY IMPAIRMENT [None]
  - LOSS OF LIBIDO [None]
  - BLOOD PRESSURE FLUCTUATION [None]
